FAERS Safety Report 5700094-7 (Version None)
Quarter: 2008Q2

REPORT INFORMATION
  Report Type: 
  Country: None (occurrence: None)
  Receive Date: 20080410
  Receipt Date: 20080401
  Transmission Date: 20081010
  Serious: Yes (Disabling, Other)
  Sender: FDA-Public Use
  Company Number: US-PURDUE-USA_2008_0032134

PATIENT
  Sex: Female

DRUGS (1)
  1. OXYCONTIN [Suspect]
     Indication: NECK PAIN
     Dosage: 80 MG, SEE TEXT
     Dates: start: 20030101

REACTIONS (7)
  - ABASIA [None]
  - ASTHENIA [None]
  - FALL [None]
  - MOVEMENT DISORDER [None]
  - MUSCLE ATROPHY [None]
  - MUSCULOSKELETAL STIFFNESS [None]
  - NEOPLASM PROGRESSION [None]
